FAERS Safety Report 5378256-0 (Version None)
Quarter: 2007Q2

REPORT INFORMATION
  Report Type: 
  Country: None (occurrence: None)
  Receive Date: 20070622
  Receipt Date: 20070606
  Transmission Date: 20071010
  Serious: Yes (Disabling)
  Sender: FDA-Public Use
  Company Number: GAM-047-07-BE

PATIENT
  Age: 54 Year
  Sex: Female

DRUGS (1)
  1. OCTAGAM [Suspect]
     Indication: CHRONIC INFLAMMATORY DEMYELINATING POLYRADICULONEUROPATHY
     Dosage: 400 MG/KG I.V.
     Route: 042
     Dates: start: 20020101, end: 20020101

REACTIONS (8)
  - CSF PROTEIN INCREASED [None]
  - DRUG INEFFECTIVE FOR UNAPPROVED INDICATION [None]
  - ELECTROMYOGRAM ABNORMAL [None]
  - GENERAL PHYSICAL HEALTH DETERIORATION [None]
  - MUSCLE CONTRACTIONS INVOLUNTARY [None]
  - NERVE CONDUCTION STUDIES ABNORMAL [None]
  - RED BLOOD CELL SEDIMENTATION RATE INCREASED [None]
  - WHEELCHAIR USER [None]
